FAERS Safety Report 9160402 (Version 3)
Quarter: 2013Q3

REPORT INFORMATION
  Report Type: Spontaneous
  Country: PL (occurrence: None)
  Receive Date: 20130219
  Receipt Date: 20130827
  Transmission Date: 20140515
  Serious: Yes (Hospitalization, Other)
  Sender: FDA-Public Use
  Company Number: 2013P1001906

PATIENT
  Age: 34 Month
  Sex: Female

DRUGS (1)
  1. ALBENDAZOLE [Suspect]
     Indication: ASCARIASIS
     Route: 048
     Dates: start: 20121125

REACTIONS (5)
  - Vomiting [None]
  - Fatigue [None]
  - Balance disorder [None]
  - Loss of consciousness [None]
  - Hypotonia [None]
